FAERS Safety Report 6385348-6 (Version None)
Quarter: 2009Q4

REPORT INFORMATION
  Report Type: 
  Country: None (occurrence: None)
  Receive Date: 20091002
  Receipt Date: 20080807
  Transmission Date: 20100525
  Serious: No
  Sender: FDA-Public Use
  Company Number: US-ASTRAZENECA-2008UW16280

PATIENT
  Age: 72 Year
  Sex: Female
  Weight: 72.6 kg

DRUGS (4)
  1. ARIMIDEX [Suspect]
     Indication: BREAST CANCER STAGE II
     Route: 048
     Dates: start: 20080802
  2. HYZAAR [Concomitant]
     Dosage: 100/25 MG
  3. LEVOTHYROXINE SODIUM [Concomitant]
  4. LIBRAX [Concomitant]

REACTIONS (1)
  - ODYNOPHAGIA [None]
